FAERS Safety Report 25321105 (Version 1)
Quarter: 2025Q2

REPORT INFORMATION
  Report Type: Spontaneous
  Country: US (occurrence: US)
  Receive Date: 20250515
  Receipt Date: 20250515
  Transmission Date: 20250716
  Serious: No
  Sender: MERCK SHARP & DOHME LLC
  Company Number: US-009507513-2279594

PATIENT
  Sex: Male

DRUGS (1)
  1. KEYTRUDA [Suspect]
     Active Substance: PEMBROLIZUMAB
     Indication: Non-small cell lung cancer
     Route: 065
     Dates: start: 20241111

REACTIONS (7)
  - Gastrointestinal disorder [Unknown]
  - Herpes zoster [Unknown]
  - Eructation [Unknown]
  - Flatulence [Unknown]
  - Muscle atrophy [Unknown]
  - Weight decreased [Unknown]
  - Pain [Recovering/Resolving]
